FAERS Safety Report 20845661 (Version 1)
Quarter: 2022Q2

REPORT INFORMATION
  Report Type: Spontaneous
  Country: US (occurrence: US)
  Receive Date: 20220518
  Receipt Date: 20220518
  Transmission Date: 20220721
  Serious: Yes (Hospitalization, Other)
  Sender: FDA-Public Use
  Company Number: US-ELI_LILLY_AND_COMPANY-US202205003572

PATIENT
  Sex: Female

DRUGS (1)
  1. BASAGLAR [Suspect]
     Active Substance: INSULIN GLARGINE
     Indication: Product used for unknown indication
     Dosage: 70 U, DAILY
     Route: 065

REACTIONS (4)
  - Respiratory syncytial virus infection [Unknown]
  - Osteomyelitis [Unknown]
  - Neovascular age-related macular degeneration [Unknown]
  - Glaucoma [Unknown]
